FAERS Safety Report 17239395 (Version 6)
Quarter: 2020Q4

REPORT INFORMATION
  Report Type: Report from Study
  Country: US (occurrence: US)
  Receive Date: 20200106
  Receipt Date: 20201215
  Transmission Date: 20210113
  Serious: Yes (Other)
  Sender: FDA-Public Use
  Company Number: NVSC2020US001490

PATIENT
  Age: 41 Year
  Sex: Male

DRUGS (3)
  1. COSENTYX [Suspect]
     Active Substance: SECUKINUMAB
     Indication: PSORIATIC ARTHROPATHY
  2. CLARITIN [Concomitant]
     Active Substance: LORATADINE
     Indication: SEASONAL ALLERGY
     Route: 065
  3. COSENTYX [Suspect]
     Active Substance: SECUKINUMAB
     Indication: PSORIASIS
     Dosage: 300 MG (INJECT 300 MG (2 PENS) AT WEEK 4,THEN 300 MG (2 PENS) EVERY 4 WEEKS THEREAFTER
     Route: 058

REACTIONS (6)
  - Lacrimation increased [Unknown]
  - Sneezing [Unknown]
  - Headache [Unknown]
  - Renal disorder [Unknown]
  - Hepatic cirrhosis [Unknown]
  - Lethargy [Unknown]
